FAERS Safety Report 9537964 (Version 2)
Quarter: 2013Q4

REPORT INFORMATION
  Report Type: Spontaneous
  Country: US (occurrence: US)
  Receive Date: 20130919
  Receipt Date: 20131104
  Transmission Date: 20140711
  Serious: Yes (Other)
  Sender: FDA-Public Use
  Company Number: US-GILEAD-2013-0083669

PATIENT
  Sex: Female

DRUGS (3)
  1. LETAIRIS [Suspect]
     Indication: PRODUCT USED FOR UNKNOWN INDICATION
     Dosage: 10 MG, QD
     Dates: start: 20130613
  2. ADCIRCA [Concomitant]
  3. TYVASO [Concomitant]

REACTIONS (8)
  - Ascites [Not Recovered/Not Resolved]
  - Aphagia [Unknown]
  - Pleural effusion [Unknown]
  - Productive cough [Not Recovered/Not Resolved]
  - Anxiety [Unknown]
  - Headache [Unknown]
  - Nausea [Unknown]
  - Fluid retention [Unknown]
